FAERS Safety Report 4621150-0 (Version None)
Quarter: 2005Q1

REPORT INFORMATION
  Report Type: 
  Country: None (occurrence: None)
  Receive Date: 20050328
  Receipt Date: 20050311
  Transmission Date: 20050727
  Serious: Yes (Other)
  Sender: FDA-Public Use
  Company Number: IE-2005-003602

PATIENT
  Age: 20 Year
  Sex: Female

DRUGS (2)
  1. MICROLITE               (ETHINYLESTRADIOL, LEVONORGESTREL) [Suspect]
     Indication: ORAL CONTRACEPTION
     Route: 048
  2. LAMICTAL [Suspect]
     Indication: EPILEPSY
     Dosage: 175 MG, 2X/DAY, ORAL
     Route: 048

REACTIONS (1)
  - CONVULSION [None]
